FAERS Safety Report 12222691 (Version 1)
Quarter: 2016Q1

REPORT INFORMATION
  Report Type: Spontaneous
  Country: IN (occurrence: IN)
  Receive Date: 20160330
  Receipt Date: 20160330
  Transmission Date: 20160526
  Serious: Yes (Disabling, Other)
  Sender: FDA-Public Use
  Company Number: IN-MYLANLABS-2016M1013237

PATIENT

DRUGS (2)
  1. PHENYTOIN. [Suspect]
     Active Substance: PHENYTOIN
     Dosage: 100MG IN 500ML OF NORMAL SALINE OVER 8 HOURS
     Route: 041
  2. PHENYTOIN. [Suspect]
     Active Substance: PHENYTOIN
     Indication: GENERALISED TONIC-CLONIC SEIZURE
     Dosage: 600MG OF INJECTION PHENYTOIN DISSOLVED IN 100ML OF NORMAL SALINE; OVER 20 MINUTES
     Route: 041

REACTIONS (1)
  - Purple glove syndrome [Not Recovered/Not Resolved]
